FAERS Safety Report 7225603-0 (Version None)
Quarter: 2011Q1

REPORT INFORMATION
  Report Type: 
  Country: None (occurrence: None)
  Receive Date: 20110110
  Receipt Date: 20110110
  Transmission Date: 20110831
  Serious: Yes (Life-Threatening)
  Sender: FDA-Public Use
  Company Number: None

PATIENT
  Age: 24 Year
  Sex: Female
  Weight: 71.1 kg

DRUGS (1)
  1. RHOPHYLAC [Suspect]
     Indication: RHESUS INCOMPATIBILITY
     Dosage: 900MCG ONCE IV
     Route: 042
     Dates: start: 20110102

REACTIONS (7)
  - CHILLS [None]
  - TACHYPNOEA [None]
  - BLOOD PRESSURE INCREASED [None]
  - TACHYCARDIA [None]
  - FEELING COLD [None]
  - PILOERECTION [None]
  - PULMONARY EMBOLISM [None]
